FAERS Safety Report 8773439 (Version 1)
Quarter: 2012Q4

REPORT INFORMATION
  Report Type: 
  Country: US (occurrence: US)
  Receive Date: 20120907
  Receipt Date: 20120907
  Transmission Date: 20130627
  Serious: No
  Sender: FDA-Public Use
  Company Number: US-B.I. PHARMACEUTICALS,INC./RIDGEFIELD-2012-BP-21475BP

PATIENT
  Sex: Female

DRUGS (3)
  1. SPIRIVA [Suspect]
     Indication: ASTHMA
     Dosage: 18 mcg
     Route: 055
     Dates: start: 2009
  2. ALBUTEROL [Concomitant]
     Indication: ASTHMA
     Dosage: (Inhalation Aerosol) Strength: 0.83 mg/mL; Daily Dose: 0.83 mg/mL
     Route: 055
     Dates: start: 2008
  3. PROAIR [Concomitant]
     Indication: ASTHMA
     Route: 055
     Dates: start: 2008

REACTIONS (2)
  - Dyspnoea [Recovered/Resolved]
  - Seasonal allergy [Not Recovered/Not Resolved]
